FAERS Safety Report 23932640 (Version 2)
Quarter: 2024Q2

REPORT INFORMATION
  Report Type: Spontaneous
  Country: FR (occurrence: FR)
  Receive Date: 20240603
  Receipt Date: 20240610
  Transmission Date: 20240716
  Serious: No
  Sender: FDA-Public Use
  Company Number: FR-SANOFI-02052877

PATIENT
  Age: 93 Year
  Sex: Female
  Weight: 45.1 kg

DRUGS (1)
  1. RIFAMPIN [Suspect]
     Active Substance: RIFAMPIN
     Indication: Osteomyelitis
     Dosage: 600 MG, QD

REACTIONS (2)
  - No adverse event [Unknown]
  - No adverse event [Unknown]
